FAERS Safety Report 5642535-X (Version None)
Quarter: 2008Q1

REPORT INFORMATION
  Report Type: 
  Country: None (occurrence: None)
  Receive Date: 20080227
  Receipt Date: 20080227
  Transmission Date: 20080703
  Serious: Yes (Hospitalization)
  Sender: FDA-Public Use
  Company Number: None

PATIENT
  Sex: Male
  Weight: 81.6475 kg

DRUGS (3)
  1. SEROQUEL [Suspect]
     Indication: BIPOLAR DISORDER
     Dosage: 800MG PO X 1 DOSE
     Route: 048
     Dates: start: 20070525
  2. WELLBUTRIN [Concomitant]
  3. SEROQUEL [Concomitant]

REACTIONS (3)
  - DYSARTHRIA [None]
  - LETHARGY [None]
  - SOMNOLENCE [None]
